FAERS Safety Report 10083607 (Version 1)
Quarter: 2014Q2

REPORT INFORMATION
  Report Type: Spontaneous
  Country: DE (occurrence: None)
  Receive Date: 20140415
  Receipt Date: 20140415
  Transmission Date: 20141212
  Serious: Yes (Hospitalization, Other)
  Sender: FDA-Public Use
  Company Number: 2014-19322

PATIENT
  Age: 71 Year
  Sex: Female

DRUGS (3)
  1. EYLEA [Suspect]
     Indication: AGE-RELATED MACULAR DEGENERATION
     Dates: start: 20131227
  2. BETADINE [Concomitant]
  3. AZITHROMYCIN (AZITHROMYCIN) [Concomitant]

REACTIONS (4)
  - Cyclitic membrane [None]
  - Hypopyon [None]
  - Endophthalmitis [None]
  - Staphylococcal infection [None]
